FAERS Safety Report 4663130-5 (Version None)
Quarter: 2005Q2

REPORT INFORMATION
  Report Type: 
  Country: None (occurrence: None)
  Receive Date: 20050510
  Receipt Date: 20040915
  Transmission Date: 20051028
  Serious: Yes (Hospitalization, Other)
  Sender: FDA-Public Use
  Company Number: PHEH2004US09917

PATIENT
  Age: 33 Year
  Sex: Female

DRUGS (3)
  1. TEGRETOL [Suspect]
     Indication: PSYCHOMOTOR SEIZURES
     Dosage: 200 MG , TID, ORAL
     Route: 048
     Dates: start: 19780101
  2. MYSOLINE [Suspect]
     Indication: PSYCHOMOTOR SEIZURES
     Dates: start: 19780101, end: 19870101
  3. PREMARIN [Concomitant]

REACTIONS (4)
  - BRAIN OPERATION [None]
  - CONVULSION [None]
  - DRUG INEFFECTIVE [None]
  - PSYCHOMOTOR SEIZURES [None]
